FAERS Safety Report 7771511-6 (Version None)
Quarter: 2011Q3

REPORT INFORMATION
  Report Type: 
  Country: None (occurrence: None)
  Receive Date: 20110922
  Receipt Date: 20110920
  Transmission Date: 20111222
  Serious: No
  Sender: FDA-Public Use
  Company Number: US-PFIZER INC-2011224280

PATIENT
  Sex: Female

DRUGS (2)
  1. LYRICA [Suspect]
     Dosage: 150 MG, DAILY
     Dates: end: 20110101
  2. LYRICA [Suspect]
     Dosage: 75 MG, DAILY
     Dates: end: 20110101

REACTIONS (1)
  - VISION BLURRED [None]
